FAERS Safety Report 21885990 (Version 1)
Quarter: 2023Q1

REPORT INFORMATION
  Report Type: Spontaneous
  Country: GB (occurrence: GB)
  Receive Date: 20230119
  Receipt Date: 20230119
  Transmission Date: 20230418
  Serious: Yes (Other)
  Sender: FDA-Public Use
  Company Number: GB-MSNLABS-2023MSNLIT00080

PATIENT

DRUGS (2)
  1. CAPECITABINE [Suspect]
     Active Substance: CAPECITABINE
     Indication: Pseudomyxoma peritonei
     Route: 065
  2. OXALIPLATIN [Suspect]
     Active Substance: OXALIPLATIN
     Indication: Pseudomyxoma peritonei
     Route: 065

REACTIONS (5)
  - Drug ineffective [Unknown]
  - Dyspnoea [None]
  - Disease progression [None]
  - Pleural mass [None]
  - Pericardial mass [None]
